FAERS Safety Report 18260283 (Version 4)
Quarter: 2025Q2

REPORT INFORMATION
  Report Type: Spontaneous
  Country: FR (occurrence: FR)
  Receive Date: 20200914
  Receipt Date: 20250620
  Transmission Date: 20250717
  Serious: Yes (Life-Threatening, Hospitalization, Other)
  Sender: AUROBINDO
  Company Number: FR-PFM-2020-18130

PATIENT
  Age: 58 Year
  Sex: Female

DRUGS (8)
  1. ACYCLOVIR [Suspect]
     Active Substance: ACYCLOVIR
     Indication: Prophylaxis
     Route: 065
  2. ACETYLCYSTEINE [Suspect]
     Active Substance: ACETYLCYSTEINE
     Indication: Prophylaxis
     Route: 042
  3. ACETYLCYSTEINE [Suspect]
     Active Substance: ACETYLCYSTEINE
     Route: 065
  4. ULIPRISTAL ACETATE [Suspect]
     Active Substance: ULIPRISTAL ACETATE
     Indication: Uterine leiomyoma
     Route: 048
  5. ULIPRISTAL ACETATE [Suspect]
     Active Substance: ULIPRISTAL ACETATE
     Indication: Uterine leiomyoma
     Dosage: 5 MILLIGRAM, ONCE A DAY
     Route: 048
  6. PIPERACILLIN SODIUM\TAZOBACTAM SODIUM [Suspect]
     Active Substance: PIPERACILLIN SODIUM\TAZOBACTAM SODIUM
     Indication: Infection prophylaxis
     Route: 065
  7. AMLODIPINE BESYLATE [Concomitant]
     Active Substance: AMLODIPINE BESYLATE
     Indication: Hypertension
     Route: 065
  8. IRBESARTAN [Concomitant]
     Active Substance: IRBESARTAN
     Indication: Hypertension
     Route: 065

REACTIONS (19)
  - Autoimmune hepatitis [Recovered/Resolved]
  - Haemorrhoids [Unknown]
  - Hepatic cirrhosis [Recovered/Resolved]
  - Drug-induced liver injury [Recovered/Resolved]
  - Jaundice [Unknown]
  - Coagulopathy [Unknown]
  - Inflammation [Unknown]
  - Model for end stage liver disease score increased [Unknown]
  - Condition aggravated [Unknown]
  - Necrosis [Unknown]
  - Renal impairment [Unknown]
  - Liver transplant [Unknown]
  - Liver disorder [Unknown]
  - General physical health deterioration [Unknown]
  - Hepatitis [Unknown]
  - Encephalopathy [Unknown]
  - Cholestasis [Unknown]
  - Off label use [Unknown]
  - Product use in unapproved indication [Unknown]

NARRATIVE: CASE EVENT DATE: 20170223
